FAERS Safety Report 13735702 (Version 1)
Quarter: 2017Q3

REPORT INFORMATION
  Report Type: Spontaneous
  Country: US (occurrence: US)
  Receive Date: 20170708
  Receipt Date: 20170708
  Transmission Date: 20171127
  Serious: Yes (Life-Threatening, Disabling, Other)
  Sender: FDA-Public Use
  Company Number: None

PATIENT
  Age: 61 Year
  Sex: Female
  Weight: 51.3 kg

DRUGS (1)
  1. GADAVIST [Suspect]
     Active Substance: GADOBUTROL
     Indication: SCAN WITH CONTRAST
     Route: 042
     Dates: start: 20170617, end: 20170617

REACTIONS (17)
  - Nausea [None]
  - Decreased appetite [None]
  - Muscle twitching [None]
  - Blood pressure increased [None]
  - Paraesthesia [None]
  - White blood cell disorder [None]
  - Headache [None]
  - Middle insomnia [None]
  - Heart rate increased [None]
  - Toxicity to various agents [None]
  - Angina pectoris [None]
  - Abdominal pain lower [None]
  - Cold sweat [None]
  - Bone pain [None]
  - Swelling [None]
  - Pain in extremity [None]
  - Abdominal pain upper [None]

NARRATIVE: CASE EVENT DATE: 20170617
